FAERS Safety Report 16085444 (Version 2)
Quarter: 2019Q2

REPORT INFORMATION
  Report Type: Report from Study
  Country: MA (occurrence: MA)
  Receive Date: 20190318
  Receipt Date: 20190401
  Transmission Date: 20190711
  Serious: Yes (Death)
  Sender: FDA-Public Use
  Company Number: MA-SA-2019SA072637

PATIENT
  Sex: Female

DRUGS (2)
  1. RAPID [SODIUM PHOSPHATE] [Concomitant]
  2. INSULIN GLARGINE [Suspect]
     Active Substance: INSULIN GLARGINE
     Indication: DIABETES MELLITUS
     Dosage: 16 IU, QD
     Route: 058
     Dates: start: 20181224

REACTIONS (3)
  - Injection site swelling [Unknown]
  - Phlebitis [Fatal]
  - Anaemia [Fatal]
